FAERS Safety Report 24863090 (Version 1)
Quarter: 2025Q1

REPORT INFORMATION
  Report Type: Report from Study
  Country: US (occurrence: US)
  Receive Date: 20250120
  Receipt Date: 20250120
  Transmission Date: 20250409
  Serious: Yes (Other)
  Sender: RECORDATI
  Company Number: US-RECORDATI RARE DISEASE INC.-2025000164

PATIENT

DRUGS (12)
  1. SIGNIFOR LAR [Suspect]
     Active Substance: PASIREOTIDE PAMOATE
     Indication: Pituitary-dependent Cushing^s syndrome
     Route: 030
     Dates: start: 20241016
  2. FLUOXETINE HYDROCHLORIDE [Concomitant]
     Active Substance: FLUOXETINE HYDROCHLORIDE
     Indication: Product used for unknown indication
     Dosage: 40 MG, QD (CAPSULE)
     Route: 048
     Dates: start: 20220802
  3. PROTONIX [Concomitant]
     Active Substance: PANTOPRAZOLE SODIUM
     Indication: Product used for unknown indication
     Route: 048
     Dates: start: 20220802
  4. MONTELUKAST SODIUM [Concomitant]
     Active Substance: MONTELUKAST SODIUM
     Indication: Product used for unknown indication
     Dosage: 10 MG, QD (TABLET)
     Route: 048
     Dates: start: 20220802
  5. ZYRTEC [Concomitant]
     Active Substance: CETIRIZINE HYDROCHLORIDE
     Indication: Product used for unknown indication
     Dosage: 10 MG, QD (TABLET)
     Route: 048
     Dates: start: 20220802
  6. ALBUTEROL SULFATE [Concomitant]
     Active Substance: ALBUTEROL SULFATE
     Indication: Product used for unknown indication
     Dates: start: 20210802
  7. ALPRAZOLAM [Concomitant]
     Active Substance: ALPRAZOLAM
     Indication: Product used for unknown indication
     Route: 048
     Dates: start: 20220802
  8. MAGNESIUM GLYCINATE [Concomitant]
     Active Substance: MAGNESIUM GLYCINATE
     Indication: Product used for unknown indication
     Dosage: 100 MG, QD; CAPSULE
     Route: 048
     Dates: start: 20220802
  9. MAGNESIUM CITRATE [Concomitant]
     Active Substance: MAGNESIUM CITRATE
     Indication: Product used for unknown indication
     Dosage: 100 MG, QD; CAPSULE
     Route: 048
     Dates: start: 20220802
  10. DIETARY SUPPLEMENT [Concomitant]
     Active Substance: DIETARY SUPPLEMENT
     Indication: Product used for unknown indication
     Dosage: 100 MG, QD; CAPSULE
     Route: 048
     Dates: start: 20220802
  11. PHOSPHATIDYL SERINE [Concomitant]
     Active Substance: PHOSPHATIDYL SERINE
     Indication: Product used for unknown indication
     Dosage: 100 MG, QD; CAPSULE
     Route: 048
     Dates: start: 20220802
  12. GUANFACINE HYDROCHLORIDE [Concomitant]
     Active Substance: GUANFACINE HYDROCHLORIDE
     Indication: Product used for unknown indication
     Dosage: 2 MG, QD (TABLET)
     Route: 048
     Dates: start: 20241001

REACTIONS (2)
  - Meningioma [Not Recovered/Not Resolved]
  - Haemangioma of liver [Not Recovered/Not Resolved]
